FAERS Safety Report 12451477 (Version 5)
Quarter: 2016Q4

REPORT INFORMATION
  Report Type: Spontaneous
  Country: JP (occurrence: JP)
  Receive Date: 20160609
  Receipt Date: 20161201
  Transmission Date: 20170207
  Serious: Yes (Death, Life-Threatening, Hospitalization, Other)
  Sender: FDA-Public Use
  Company Number: JP-DSJP-DSJ-2016-118449AA

PATIENT

DRUGS (11)
  1. LIXIANA TABLETS [Suspect]
     Active Substance: EDOXABAN TOSILATE MONOHYDRATE
     Indication: ATRIAL FIBRILLATION
     Dosage: 30 MG, QD
     Route: 048
     Dates: start: 20160113, end: 20160528
  2. OLMETEC OD TABLETS 20MG [Concomitant]
     Indication: HYPERTENSION
     Dosage: 20 MG, QD
     Route: 048
     Dates: start: 20070730
  3. NEXIUM [Concomitant]
     Active Substance: ESOMEPRAZOLE MAGNESIUM
     Indication: GASTROOESOPHAGEAL REFLUX DISEASE
     Dosage: 20 MG, QD
     Route: 048
     Dates: start: 201512, end: 20160528
  4. SOLDANA [Concomitant]
     Indication: CONSTIPATION
     Dosage: 24 MG, QD
     Route: 048
     Dates: start: 20160519, end: 20160528
  5. URIEF [Concomitant]
     Active Substance: SILODOSIN
     Indication: BENIGN PROSTATIC HYPERPLASIA
     Dosage: 4 MG, BID
     Route: 048
     Dates: start: 20110315, end: 20160528
  6. BESACOLIN [Concomitant]
     Active Substance: BETHANECHOL CHLORIDE
     Indication: BENIGN PROSTATIC HYPERPLASIA
     Dosage: 10 MG, TID
     Route: 048
     Dates: start: 20160309, end: 20160528
  7. UBRETID [Concomitant]
     Active Substance: DISTIGMINE BROMIDE
     Indication: BENIGN PROSTATIC HYPERPLASIA
     Dosage: 5 MG, QD
     Route: 048
     Dates: start: 20070731, end: 20160528
  8. LUNESTA [Concomitant]
     Active Substance: ESZOPICLONE
     Indication: INSOMNIA
     Dosage: 2 MG, QD
     Route: 048
     Dates: start: 20160212, end: 20160528
  9. NICERGOLINE [Concomitant]
     Active Substance: NICERGOLINE
     Indication: BRAIN STEM INFARCTION
     Dosage: 5 MG, TID
     Route: 048
     Dates: start: 20160112, end: 20160528
  10. VASOLAN                            /00014302/ [Concomitant]
     Active Substance: VERAPAMIL HYDROCHLORIDE
     Indication: ARRHYTHMIA
     Dosage: 40 MG, TID
     Route: 048
     Dates: start: 20151104, end: 20160528
  11. PIMENOL [Concomitant]
     Active Substance: PIRMENOL HYDROCHLORIDE
     Indication: ARRHYTHMIA
     Dosage: 50 MG, BID
     Route: 048
     Dates: start: 20070730, end: 20160528

REACTIONS (2)
  - Interstitial lung disease [Recovering/Resolving]
  - Cerebrovascular disorder [Fatal]

NARRATIVE: CASE EVENT DATE: 20160527
